FAERS Safety Report 10065606 (Version 1)
Quarter: 2014Q2

REPORT INFORMATION
  Report Type: Spontaneous
  Country: US (occurrence: US)
  Receive Date: 20140408
  Receipt Date: 20140408
  Transmission Date: 20141212
  Serious: No
  Sender: FDA-Public Use
  Company Number: US-TEVA-474470USA

PATIENT
  Sex: Male

DRUGS (5)
  1. FENTORA [Suspect]
     Indication: PAIN
  2. FENTORA [Suspect]
     Indication: MUSCLE SPASTICITY
  3. FENTORA [Suspect]
     Indication: PAIN IN EXTREMITY
  4. FENTORA [Suspect]
     Indication: PERONEAL NERVE PALSY
  5. FENTORA [Suspect]
     Indication: GAIT DISTURBANCE

REACTIONS (1)
  - Off label use [Unknown]
